FAERS Safety Report 7878725-5 (Version None)
Quarter: 2011Q4

REPORT INFORMATION
  Report Type: 
  Country: None (occurrence: None)
  Receive Date: 20111021
  Receipt Date: 20110727
  Transmission Date: 20120403
  Serious: No
  Sender: FDA-Public Use
  Company Number: US-005953

PATIENT
  Age: 81 Year
  Sex: Male

DRUGS (5)
  1. METOPROLOL [Concomitant]
  2. SIMVASTATIN [Concomitant]
  3. FLOMAX [Concomitant]
  4. LISINOPRIL [Concomitant]
  5. DEGARELIX 240 MG [Suspect]
     Indication: PROSTATE CANCER
     Dosage: 240 MG 1 X SUBCUTANEOUS
     Route: 058
     Dates: start: 20110705, end: 20110705

REACTIONS (1)
  - HYPONATRAEMIA [None]
